FAERS Safety Report 6872200-2 (Version None)
Quarter: 2010Q3

REPORT INFORMATION
  Report Type: 
  Country: None (occurrence: None)
  Receive Date: 20100723
  Receipt Date: 20091019
  Transmission Date: 20110219
  Serious: No
  Sender: FDA-Public Use
  Company Number: A0812408A

PATIENT
  Age: 58 Year
  Sex: Male

DRUGS (3)
  1. MYLERAN [Suspect]
     Indication: AMYLOIDOSIS
     Dosage: 32MG PER DAY
     Route: 048
     Dates: start: 20091015, end: 20091018
  2. DEXAMETHASONE [Concomitant]
  3. MULTIPLE MEDICATIONS [Concomitant]

REACTIONS (4)
  - ABDOMINAL PAIN [None]
  - DIARRHOEA [None]
  - DIZZINESS [None]
  - OVERDOSE [None]
